FAERS Safety Report 4366369-1 (Version None)
Quarter: 2004Q2

REPORT INFORMATION
  Report Type: 
  Country: None (occurrence: None)
  Receive Date: 20040527
  Receipt Date: 20040129
  Transmission Date: 20050107
  Serious: No
  Sender: FDA-Public Use
  Company Number: US-GLAXOSMITHKLINE-A0496715A

PATIENT
  Age: 55 Year
  Sex: Female

DRUGS (4)
  1. VENTOLIN [Suspect]
     Indication: ASTHMA
     Dosage: 2PUFF FOUR TIMES PER DAY
     Route: 055
  2. MULTIVITAMIN [Concomitant]
  3. HERBS [Concomitant]
  4. ACUPUNCTURE [Concomitant]

REACTIONS (1)
  - ASTHMA [None]
